FAERS Safety Report 22268208 (Version 12)
Quarter: 2025Q1

REPORT INFORMATION
  Report Type: Spontaneous
  Country: US (occurrence: US)
  Receive Date: 20230430
  Receipt Date: 20250213
  Transmission Date: 20250408
  Serious: No
  Sender: PFIZER
  Company Number: US-PFIZER INC-PV202300075200

PATIENT
  Age: 81 Year
  Sex: Female
  Weight: 75.74 kg

DRUGS (2)
  1. BOSULIF [Suspect]
     Active Substance: BOSUTINIB MONOHYDRATE
     Indication: Chronic myeloid leukaemia
     Dosage: 300 MG, DAILY (TAKE 3 TABLETS (300 MG TOTAL) 1 TIME A DAY)
     Route: 048
  2. BOSULIF [Suspect]
     Active Substance: BOSUTINIB MONOHYDRATE
     Dosage: 300 MG, DAILY (TAKE 3 TABLETS (300 MG TOTAL) MUST ADMINISTER WITH A MEAL/FOOD)
     Route: 048

REACTIONS (1)
  - Diarrhoea [Recovered/Resolved]
